FAERS Safety Report 14681233 (Version 5)
Quarter: 2018Q2

REPORT INFORMATION
  Report Type: Spontaneous
  Country: US (occurrence: US)
  Receive Date: 20180326
  Receipt Date: 20180525
  Transmission Date: 20180711
  Serious: Yes (Hospitalization, Other)
  Sender: FDA-Public Use
  Company Number: US-PFIZER INC-2018054260

PATIENT
  Age: 74 Year
  Sex: Male
  Weight: 76 kg

DRUGS (2)
  1. NEURONTIN [Suspect]
     Active Substance: GABAPENTIN
     Indication: PAIN IN EXTREMITY
     Dosage: 20 MG, AS NEEDED
     Route: 048
     Dates: start: 201801, end: 201802
  2. NEURONTIN [Suspect]
     Active Substance: GABAPENTIN
     Dosage: 600 MG, 1X/DAY
     Route: 048
     Dates: start: 201801, end: 201802

REACTIONS (10)
  - Depressed mood [Unknown]
  - Lung neoplasm malignant [Recovered/Resolved]
  - Product use in unapproved indication [Unknown]
  - Dizziness [Unknown]
  - Hallucination [Unknown]
  - Illusion [Unknown]
  - Malaise [Recovering/Resolving]
  - Feeling abnormal [Unknown]
  - Neoplasm malignant [Unknown]
  - Amnesia [Unknown]

NARRATIVE: CASE EVENT DATE: 201801
